FAERS Safety Report 5603007-1 (Version None)
Quarter: 2008Q1

REPORT INFORMATION
  Report Type: 
  Country: None (occurrence: None)
  Receive Date: 20080125
  Receipt Date: 20070430
  Transmission Date: 20080703
  Serious: Yes (Other)
  Sender: FDA-Public Use
  Company Number: US-PFIZER INC-2007013886

PATIENT
  Sex: Female
  Weight: 51.7 kg

DRUGS (10)
  1. CHANTIX [Suspect]
     Indication: SMOKING CESSATION THERAPY
     Dates: start: 20070205, end: 20070209
  2. DURAGESIC-100 [Concomitant]
  3. NEXIUM [Concomitant]
  4. PROTONIX [Concomitant]
  5. PREMARIN [Concomitant]
  6. XANAX [Concomitant]
  7. SOMA [Concomitant]
  8. LAMICTAL [Concomitant]
  9. MECLIZINE [Concomitant]
  10. DOXEPIN HCL [Concomitant]

REACTIONS (2)
  - CONVULSION [None]
  - POSTICTAL STATE [None]
